FAERS Safety Report 14660106 (Version 4)
Quarter: 2018Q2

REPORT INFORMATION
  Report Type: Spontaneous
  Country: DE (occurrence: DE)
  Receive Date: 20180320
  Receipt Date: 20180502
  Transmission Date: 20180711
  Serious: Yes (Death, Life-Threatening, Hospitalization)
  Sender: FDA-Public Use
  Company Number: DE-ELI_LILLY_AND_COMPANY-DE201803006716

PATIENT
  Age: 72 Year
  Sex: Male
  Weight: 88 kg

DRUGS (3)
  1. DOXORUBICIN [Concomitant]
     Active Substance: DOXORUBICIN
     Indication: PRODUCT USED FOR UNKNOWN INDICATION
     Dosage: UNK, UNKNOWN
     Route: 065
  2. LARTRUVO [Suspect]
     Active Substance: OLARATUMAB
     Indication: SARCOMA
     Dosage: 1190 MG, UNKNOWN
     Route: 042
     Dates: start: 20180219
  3. LARTRUVO [Suspect]
     Active Substance: OLARATUMAB
     Dosage: 1190 MG, UNKNOWN
     Route: 042
     Dates: start: 20180219

REACTIONS (6)
  - Pericardial haemorrhage [Fatal]
  - General physical condition abnormal [Fatal]
  - Malignant neoplasm progression [Fatal]
  - Circulatory collapse [Fatal]
  - Dyspnoea exertional [Fatal]
  - Cardiovascular insufficiency [Fatal]

NARRATIVE: CASE EVENT DATE: 201802
